FAERS Safety Report 15458886 (Version 1)
Quarter: 2018Q4

REPORT INFORMATION
  Report Type: Spontaneous
  Country: US (occurrence: US)
  Receive Date: 20181001
  Receipt Date: 20181001
  Transmission Date: 20190204
  Serious: Yes (Other)
  Sender: FDA-Public Use
  Company Number: None

PATIENT
  Age: 64 Year
  Sex: Male
  Weight: 96.75 kg

DRUGS (16)
  1. CARVEDILOL. [Concomitant]
     Active Substance: CARVEDILOL
  2. TRESIBA [Concomitant]
     Active Substance: INSULIN DEGLUDEC
  3. METHADONE [Concomitant]
     Active Substance: METHADONE HYDROCHLORIDE
  4. FLUOCINOLONE ACETONIDE. [Concomitant]
     Active Substance: FLUOCINOLONE ACETONIDE
  5. OXYCODONE-ACETAMINOPHEN [Suspect]
     Active Substance: ACETAMINOPHEN\OXYCODONE HYDROCHLORIDE
     Indication: ARTHRITIS
     Dosage: ?          QUANTITY:1 TABLET(S);?
     Route: 048
  6. OXYCODONE-ACETAMINOPHEN [Suspect]
     Active Substance: ACETAMINOPHEN\OXYCODONE HYDROCHLORIDE
     Indication: AMPUTATION STUMP PAIN
     Dosage: ?          QUANTITY:1 TABLET(S);?
     Route: 048
  7. METFORMIN [Concomitant]
     Active Substance: METFORMIN HYDROCHLORIDE
  8. ASPIRIN. [Concomitant]
     Active Substance: ASPIRIN
  9. OXYCODONE [Concomitant]
     Active Substance: OXYCODONE
  10. GABAPENTIN. [Concomitant]
     Active Substance: GABAPENTIN
  11. DULOXETINE. [Concomitant]
     Active Substance: DULOXETINE
  12. OXYBUTYNIN. [Concomitant]
     Active Substance: OXYBUTYNIN CHLORIDE
  13. AMLODIPINE [Concomitant]
     Active Substance: AMLODIPINE BESYLATE
  14. PRAVASTATIN. [Concomitant]
     Active Substance: PRAVASTATIN
  15. GLYBURIDE. [Concomitant]
     Active Substance: GLYBURIDE
  16. METRONIDAZOLE CREAM [Concomitant]
     Active Substance: METRONIDAZOLE

REACTIONS (3)
  - Drug ineffective [None]
  - Headache [None]
  - Product formulation issue [None]

NARRATIVE: CASE EVENT DATE: 20180928
